FAERS Safety Report 7854101-6 (Version None)
Quarter: 2011Q4

REPORT INFORMATION
  Report Type: 
  Country: None (occurrence: None)
  Receive Date: 20111026
  Receipt Date: 20111019
  Transmission Date: 20120403
  Serious: Yes (Death, Hospitalization, Other)
  Sender: FDA-Public Use
  Company Number: US-CELGENEUS-ABX32-10-0547

PATIENT
  Age: 80 Year
  Sex: Female
  Weight: 47.4 kg

DRUGS (2)
  1. BEVACIZUMAB [Suspect]
     Dosage: 10 MILLIGRAM/KILOGRAM
     Route: 041
     Dates: start: 20100701, end: 20100701
  2. ABRAXANE [Suspect]
     Dosage: 150 MILLIGRAM/SQ. METER
     Route: 041
     Dates: start: 20100701, end: 20100708

REACTIONS (9)
  - PLEURAL EFFUSION [None]
  - PNEUMOTHORAX [None]
  - PNEUMONITIS [None]
  - DEATH [None]
  - EMBOLISM [None]
  - DYSPNOEA [None]
  - CARDIAC FAILURE [None]
  - ATRIAL FIBRILLATION [None]
  - HYPOXIA [None]
